FAERS Safety Report 4521570-9 (Version None)
Quarter: 2004Q4

REPORT INFORMATION
  Report Type: 
  Country: None (occurrence: None)
  Receive Date: 20041206
  Receipt Date: 20041122
  Transmission Date: 20050328
  Serious: Yes (Hospitalization)
  Sender: FDA-Public Use
  Company Number: 2004UW24014

PATIENT
  Age: 64 Year
  Sex: Female
  Weight: 52.163 kg

DRUGS (4)
  1. SEROQUEL [Suspect]
     Dosage: 100 MG HS PO
     Route: 048
     Dates: start: 20040901
  2. LEVOTHYROXINE SODIUM [Concomitant]
  3. LOTREL [Concomitant]
  4. ESTRATEST [Concomitant]

REACTIONS (2)
  - ANEURYSM [None]
  - CEREBROVASCULAR ACCIDENT [None]
